FAERS Safety Report 8538174 (Version 2)
Quarter: 2013Q1

REPORT INFORMATION
  Report Type: Spontaneous
  Country: US (occurrence: None)
  Receive Date: 20120424
  Receipt Date: 20130122
  Transmission Date: 20140127
  Serious: Yes (Hospitalization)
  Sender: FDA-Public Use
  Company Number: 1204-183

PATIENT
  Age: 94 Year
  Sex: Female

DRUGS (9)
  1. EYLEA [Suspect]
     Dosage: INTRAVITREAL
     Dates: start: 20120802
  2. OMEPRAZOLE [Concomitant]
  3. LISINOPRIL (LISINOPRIL) [Concomitant]
  4. FUROSEMIDE (FUROSEMIDE) [Concomitant]
  5. CRESTOR [Concomitant]
  6. VITAMIN D [Concomitant]
  7. VITAMIN C [Concomitant]
  8. OSCAL [Concomitant]
  9. TYLENOL (PARACETAMOL) [Concomitant]

REACTIONS (2)
  - Haemorrhage [None]
  - Retinal detachment [None]
